FAERS Safety Report 6112476-2 (Version None)
Quarter: 2009Q1

REPORT INFORMATION
  Report Type: 
  Country: None (occurrence: None)
  Receive Date: 20090312
  Receipt Date: 20090310
  Transmission Date: 20090719
  Serious: Yes (Hospitalization)
  Sender: FDA-Public Use
  Company Number: IT-JNJFOC-20090302195

PATIENT
  Age: 63 Year
  Sex: Male

DRUGS (3)
  1. TAVANIC [Suspect]
     Indication: ANTIBIOTIC PROPHYLAXIS
     Route: 042
  2. PANTOPRAZOLE [Concomitant]
     Route: 042
  3. NORMOSOL [Concomitant]
     Route: 042

REACTIONS (1)
  - ERYTHEMA [None]
